FAERS Safety Report 5680118-6 (Version None)
Quarter: 2008Q1

REPORT INFORMATION
  Report Type: 
  Country: None (occurrence: None)
  Receive Date: 20080326
  Receipt Date: 20080311
  Transmission Date: 20080703
  Serious: Yes (Other)
  Sender: FDA-Public Use
  Company Number: FR-BRISTOL-MYERS SQUIBB COMPANY-14122287

PATIENT
  Age: 54 Year
  Sex: Female

DRUGS (3)
  1. CETUXIMAB [Suspect]
     Indication: COLORECTAL CANCER METASTATIC
     Dates: start: 20080207
  2. IRINOTECAN HCL [Suspect]
     Indication: COLORECTAL CANCER METASTATIC
     Route: 011
  3. PAZOPANIB [Suspect]
     Indication: COLORECTAL CANCER METASTATIC
     Dates: start: 20080208

REACTIONS (1)
  - ALANINE AMINOTRANSFERASE INCREASED [None]
